FAERS Safety Report 6029051-0 (Version None)
Quarter: 2009Q1

REPORT INFORMATION
  Report Type: 
  Country: None (occurrence: None)
  Receive Date: 20090106
  Receipt Date: 20081229
  Transmission Date: 20090719
  Serious: Yes (Other)
  Sender: FDA-Public Use
  Company Number: US-ELI_LILLY_AND_COMPANY-US200812006010

PATIENT
  Sex: Female

DRUGS (5)
  1. FORTEO [Suspect]
     Dates: start: 20080401, end: 20081001
  2. FORTEO [Suspect]
     Dates: start: 20081201
  3. PREVACID [Concomitant]
  4. CALCIUM [Concomitant]
  5. VITAMIN D [Concomitant]

REACTIONS (6)
  - ATRIAL FIBRILLATION [None]
  - CHEST DISCOMFORT [None]
  - DIZZINESS [None]
  - FAECAL INCONTINENCE [None]
  - NAUSEA [None]
  - PALPITATIONS [None]
